FAERS Safety Report 5120780-X (Version None)
Quarter: 2006Q4

REPORT INFORMATION
  Report Type: 
  Country: None (occurrence: None)
  Receive Date: 20061003
  Receipt Date: 20061003
  Transmission Date: 20070319
  Serious: Yes (Other)
  Sender: FDA-Public Use
  Company Number: None

PATIENT
  Age: 64 Year
  Sex: Female

DRUGS (6)
  1. BYETTA [Suspect]
     Indication: DIABETES MELLITUS
     Dosage: 5.0 MICROGRAM(S) 2
     Dates: start: 20060505, end: 20060726
  2. ASPIRIN [Concomitant]
  3. LISINOPRIL [Concomitant]
  4. RABEPRAZOLE SODIUM [Concomitant]
  5. GABAPENTIN [Concomitant]
  6. PRAVASTATIN [Concomitant]

REACTIONS (4)
  - ABDOMINAL PAIN UPPER [None]
  - BLOOD GLUCOSE INCREASED [None]
  - DRUG EFFECT DECREASED [None]
  - NAUSEA [None]
